FAERS Safety Report 16784385 (Version 2)
Quarter: 2020Q1

REPORT INFORMATION
  Report Type: Spontaneous
  Country: IE (occurrence: GB)
  Receive Date: 20190909
  Receipt Date: 20200110
  Transmission Date: 20200409
  Serious: No
  Sender: FDA-Public Use
  Company Number: GB-BEH-2019106700

PATIENT
  Age: 66 Year
  Sex: Male

DRUGS (6)
  1. RESPREEZA [Suspect]
     Active Substance: .ALPHA.1-PROTEINASE INHIBITOR HUMAN
     Dosage: DOUBLE DOSE
     Route: 065
     Dates: start: 20191223, end: 20191223
  2. RESPREEZA [Suspect]
     Active Substance: .ALPHA.1-PROTEINASE INHIBITOR HUMAN
     Indication: ALPHA-1 ANTI-TRYPSIN DEFICIENCY
     Dosage: DOUBLE DOSE
     Route: 065
     Dates: start: 20161220, end: 20161220
  3. RESPREEZA [Suspect]
     Active Substance: .ALPHA.1-PROTEINASE INHIBITOR HUMAN
     Dosage: DOUBLE DOSE
     Route: 065
     Dates: start: 20181218, end: 20181218
  4. RESPREEZA [Suspect]
     Active Substance: .ALPHA.1-PROTEINASE INHIBITOR HUMAN
     Dosage: 192 MILLILITER
     Route: 042
     Dates: start: 20161010
  5. RESPREEZA [Suspect]
     Active Substance: .ALPHA.1-PROTEINASE INHIBITOR HUMAN
     Dosage: DOUBLE DOSE
     Route: 065
     Dates: start: 20170425, end: 20170425
  6. RESPREEZA [Suspect]
     Active Substance: .ALPHA.1-PROTEINASE INHIBITOR HUMAN
     Dosage: DOUBLE DOSE
     Route: 065
     Dates: start: 20171220, end: 20171220

REACTIONS (2)
  - Intentional overdose [Unknown]
  - No adverse event [Unknown]
